FAERS Safety Report 4641061-4 (Version None)
Quarter: 2005Q2

REPORT INFORMATION
  Report Type: 
  Country: None (occurrence: None)
  Receive Date: 20050421
  Receipt Date: 20050408
  Transmission Date: 20051028
  Serious: Yes (Hospitalization, Other)
  Sender: FDA-Public Use
  Company Number: GB-JNJFOC-20050306090

PATIENT
  Sex: Male
  Weight: 73 kg

DRUGS (11)
  1. REMICADE [Suspect]
     Indication: RHEUMATOID ARTHRITIS
     Route: 042
  2. PREDNISOLONE [Concomitant]
  3. METHOTREXATE [Concomitant]
  4. PARACETAMOL [Concomitant]
  5. LANSOPRAZOLE [Concomitant]
  6. FOLIC ACID [Concomitant]
  7. NAPROXEN [Concomitant]
  8. AMLODIPINE [Concomitant]
  9. NIFEDIPINE [Concomitant]
  10. TEGRETOL [Concomitant]
  11. GABAPENTIN [Concomitant]

REACTIONS (8)
  - LEG AMPUTATION [None]
  - LOBAR PNEUMONIA [None]
  - LOWER RESPIRATORY TRACT INFECTION [None]
  - PSEUDOMONAS INFECTION [None]
  - PULMONARY EMBOLISM [None]
  - SPUTUM CULTURE POSITIVE [None]
  - STAPHYLOCOCCAL INFECTION [None]
  - VASCULAR GRAFT OCCLUSION [None]
